FAERS Safety Report 25120053 (Version 3)
Quarter: 2025Q2

REPORT INFORMATION
  Report Type: Report from Study
  Country: KZ (occurrence: KZ)
  Receive Date: 20250325
  Receipt Date: 20250402
  Transmission Date: 20250717
  Serious: Yes (Death, Life-Threatening, Other)
  Sender: NOVARTIS
  Company Number: KZ-002147023-NVSC2025KZ049217

PATIENT
  Age: 40 Year
  Sex: Female
  Weight: 58 kg

DRUGS (2)
  1. KISQALI [Suspect]
     Active Substance: RIBOCICLIB
     Indication: HER2 negative breast cancer
     Dosage: 600 MG, QD (FOLLOWED BY A BREAK IN TAKING THE DRUG FOR 7 DAYS)
     Route: 048
     Dates: start: 2021, end: 202209
  2. KISQALI [Suspect]
     Active Substance: RIBOCICLIB
     Indication: Breast cancer metastatic
     Route: 065
     Dates: start: 202304

REACTIONS (7)
  - Drug withdrawal syndrome [Fatal]
  - Depression [Fatal]
  - Tachycardia [Recovering/Resolving]
  - Blood pressure increased [Recovering/Resolving]
  - Electrocardiogram QT prolonged [Recovering/Resolving]
  - Drug ineffective [Unknown]
  - Visceral pain [Unknown]

NARRATIVE: CASE EVENT DATE: 20220101
